FAERS Safety Report 6266261-1 (Version None)
Quarter: 2009Q3

REPORT INFORMATION
  Report Type: 
  Country: None (occurrence: None)
  Receive Date: 20090713
  Receipt Date: 20090629
  Transmission Date: 20100115
  Serious: Yes (Other)
  Sender: FDA-Public Use
  Company Number: GB-MYLANLABS-2009S1011632

PATIENT
  Sex: Female

DRUGS (1)
  1. ALLOPURINOL [Suspect]
     Indication: GOUTY TOPHUS

REACTIONS (5)
  - BACTERIAL TOXAEMIA [None]
  - DRUG EXPOSURE DURING PREGNANCY [None]
  - GOUT [None]
  - HYPERTENSION [None]
  - RASH GENERALISED [None]
